FAERS Safety Report 11345129 (Version 1)
Quarter: 2015Q3

REPORT INFORMATION
  Report Type: Spontaneous
  Country: IT (occurrence: IT)
  Receive Date: 20150806
  Receipt Date: 20150806
  Transmission Date: 20151125
  Serious: Yes (Hospitalization)
  Sender: FDA-Public Use
  Company Number: IT-BAYER-2015-390349

PATIENT
  Age: 69 Year
  Sex: Male

DRUGS (5)
  1. DEXIBUPROFEN [Concomitant]
     Active Substance: DEXIBUPROFEN
  2. OMEPRAZOLE. [Concomitant]
     Active Substance: OMEPRAZOLE
  3. DIAMOX SEQUELS [Concomitant]
     Active Substance: ACETAZOLAMIDE
  4. CIPROXIN [Suspect]
     Active Substance: CIPROFLOXACIN
     Indication: OSTEOMYELITIS
     Dosage: DAILY DOSE 1500 MG
     Route: 048
     Dates: start: 20150601, end: 20150713
  5. CINNARIZINE [Concomitant]
     Active Substance: CINNARIZINE

REACTIONS (3)
  - Dehydration [Recovering/Resolving]
  - Abdominal pain [Recovering/Resolving]
  - Diarrhoea [Recovering/Resolving]

NARRATIVE: CASE EVENT DATE: 20150710
